FAERS Safety Report 8982290 (Version 1)
Quarter: 2012Q4

REPORT INFORMATION
  Report Type: 
  Country: US (occurrence: US)
  Receive Date: 20121212
  Receipt Date: 20121212
  Transmission Date: 20130627
  Serious: Yes (Death, Other)
  Sender: FDA-Public Use
  Company Number: US-ASTELLAS-1110702

PATIENT
  Sex: Male

DRUGS (7)
  1. TARCEVA [Suspect]
     Indication: PANCREATIC CARCINOMA
     Route: 065
  2. GEMZAR [Concomitant]
  3. TAXOTERE [Concomitant]
  4. CISPLATIN [Concomitant]
  5. OXYCONTIN [Concomitant]
     Route: 065
  6. METHADONE [Concomitant]
     Route: 065
  7. CELEBREX [Concomitant]
     Route: 065

REACTIONS (6)
  - Death [Fatal]
  - Metastasis [Unknown]
  - Pancreatic carcinoma [Unknown]
  - Hepatobiliary cancer [Unknown]
  - Malaise [Unknown]
  - Pain [Unknown]
